FAERS Safety Report 4530770-3 (Version None)
Quarter: 2004Q4

REPORT INFORMATION
  Report Type: 
  Country: None (occurrence: None)
  Receive Date: 20041129
  Receipt Date: 20040528
  Transmission Date: 20050328
  Serious: Yes (Hospitalization)
  Sender: FDA-Public Use
  Company Number: USA040668857

PATIENT
  Age: 19 Year
  Sex: Female
  Weight: 52 kg

DRUGS (5)
  1. ZYPREXA [Suspect]
     Indication: SCHIZOPHRENIA
     Dosage: 400 MG DAY
  2. ATIVAN [Concomitant]
  3. LITHIUM [Concomitant]
  4. LEXAPRO [Concomitant]
  5. MIRCETTE [Concomitant]

REACTIONS (5)
  - DEPRESSED LEVEL OF CONSCIOUSNESS [None]
  - HYPOCALCAEMIA [None]
  - HYPOKALAEMIA [None]
  - HYPONATRAEMIA [None]
  - OVERDOSE [None]
